FAERS Safety Report 15314016 (Version 1)
Quarter: 2018Q3

REPORT INFORMATION
  Report Type: Spontaneous
  Country: US (occurrence: US)
  Receive Date: 20180824
  Receipt Date: 20180824
  Transmission Date: 20181010
  Serious: No
  Sender: FDA-Public Use
  Company Number: US-DRREDDYS-USA/USA/18/0097614

PATIENT
  Sex: Male
  Weight: 88.18 kg

DRUGS (2)
  1. FONDAPARINUX SODIUM 2.5 MG/0.5 ML [Suspect]
     Active Substance: FONDAPARINUX SODIUM
     Indication: SUPRAVENTRICULAR TACHYCARDIA
     Dosage: 2.5MG/0.5ML ONCE DAILY
     Route: 058
  2. FONDAPARINUX SODIUM 2.5 MG/0.5 ML [Suspect]
     Active Substance: FONDAPARINUX SODIUM
     Indication: SUPRAVENTRICULAR TACHYCARDIA
     Dosage: 7.5MG/0.5ML ONCE DAILY
     Route: 058

REACTIONS (2)
  - Drug dose omission [Unknown]
  - Product physical issue [Unknown]
